FAERS Safety Report 8250129-5 (Version None)
Quarter: 2012Q1

REPORT INFORMATION
  Report Type: 
  Country: None (occurrence: None)
  Receive Date: 20120328
  Receipt Date: 20120327
  Transmission Date: 20120608
  Serious: Yes (Other)
  Sender: FDA-Public Use
  Company Number: 2012SP013696

PATIENT
  Age: 50 Year
  Sex: Female

DRUGS (9)
  1. VITAMIN D [Concomitant]
  2. NEXIUM [Concomitant]
  3. LEVOTHYROXINE SODIUM [Concomitant]
  4. SAPHRIS [Suspect]
     Indication: BIPOLAR I DISORDER
     Dosage: 2 DF;QD;IV
     Route: 042
     Dates: start: 20120201
  5. METFORMIN HCL [Concomitant]
  6. OLANZAPINE [Concomitant]
  7. COGENTIN [Concomitant]
  8. CITALOPRAM HYDROBROMIDE [Concomitant]
  9. LITHIUM CARBONATE [Concomitant]

REACTIONS (3)
  - HYPOAESTHESIA [None]
  - TREMOR [None]
  - DRUG ADMINISTRATION ERROR [None]
